FAERS Safety Report 7484235-X (Version None)
Quarter: 2011Q2

REPORT INFORMATION
  Report Type: 
  Country: None (occurrence: None)
  Receive Date: 20110517
  Receipt Date: 20110505
  Transmission Date: 20111010
  Serious: Yes (Other)
  Sender: FDA-Public Use
  Company Number: PHHY2011DE39536

PATIENT
  Age: 55 Year
  Sex: Female

DRUGS (4)
  1. ZOLEDRONIC ACID [Suspect]
     Dosage: UNK
     Route: 042
     Dates: start: 20060601, end: 20070301
  2. CHEMOTHERAPEUTICS NOS [Concomitant]
  3. CORTISONE [Concomitant]
  4. PAMIDRONATE DISODIUM [Suspect]
     Dosage: UNK
     Route: 042
     Dates: start: 20000801, end: 20060601

REACTIONS (1)
  - OSTEONECROSIS OF JAW [None]
